FAERS Safety Report 11302090 (Version 1)
Quarter: 2015Q3

REPORT INFORMATION
  Report Type: Spontaneous
  Country: US (occurrence: None)
  Receive Date: 20150723
  Receipt Date: 20150723
  Transmission Date: 20151125
  Serious: Yes (Hospitalization)
  Sender: FDA-Public Use
  Company Number: None

PATIENT
  Age: 68 Year
  Sex: Male
  Weight: 70.76 kg

DRUGS (19)
  1. TACROLIMUS. [Concomitant]
     Active Substance: TACROLIMUS
  2. LANTUS [Concomitant]
     Active Substance: INSULIN GLARGINE
  3. VALCYTE [Concomitant]
     Active Substance: VALGANCICLOVIR HYDROCHLORIDE
  4. TESTOSTERONE. [Concomitant]
     Active Substance: TESTOSTERONE
  5. PREDNISONE. [Concomitant]
     Active Substance: PREDNISONE
  6. NOVOLOG [Concomitant]
     Active Substance: INSULIN ASPART
  7. PANTOPRAZOLE [Concomitant]
     Active Substance: PANTOPRAZOLE SODIUM
  8. ERGOCALCIFEROL. [Concomitant]
     Active Substance: ERGOCALCIFEROL
  9. CEPHALEXIN. [Concomitant]
     Active Substance: CEPHALEXIN
  10. ASPIRIN. [Concomitant]
     Active Substance: ASPIRIN
  11. OXYCODONE [Concomitant]
     Active Substance: OXYCODONE
  12. SILVER SULFATE [Concomitant]
  13. HARVONI [Suspect]
     Active Substance: LEDIPASVIR\SOFOSBUVIR
     Indication: HEPATITIS C
     Dosage: 90/400MG DAILY
     Route: 048
     Dates: start: 20150319, end: 20150610
  14. FLUDROCORTISON [Concomitant]
     Active Substance: FLUDROCORTISONE
  15. URSODIOL. [Concomitant]
     Active Substance: URSODIOL
  16. MAG-OX [Concomitant]
     Active Substance: MAGNESIUM OXIDE
  17. POTASSIUM [Concomitant]
     Active Substance: POTASSIUM
  18. SPIRONOLACTONE. [Concomitant]
     Active Substance: SPIRONOLACTONE
  19. ROCALTROL [Concomitant]
     Active Substance: CALCITRIOL

REACTIONS (4)
  - Fatigue [None]
  - Deep vein thrombosis [None]
  - Oedema peripheral [None]
  - Night sweats [None]

NARRATIVE: CASE EVENT DATE: 20150408
